FAERS Safety Report 4568325-7 (Version None)
Quarter: 2005Q1

REPORT INFORMATION
  Report Type: 
  Country: None (occurrence: None)
  Receive Date: 20050131
  Receipt Date: 20050119
  Transmission Date: 20050727
  Serious: Yes (Hospitalization, Disabling, Other)
  Sender: FDA-Public Use
  Company Number: 2005016344

PATIENT
  Sex: Male

DRUGS (3)
  1. SERTRALINE HCL [Suspect]
     Indication: DEPRESSION
     Dosage: (50 MG), ORAL
     Route: 048
     Dates: start: 20041213, end: 20041217
  2. PRINZIDE [Concomitant]
  3. FELODIPINE [Concomitant]

REACTIONS (2)
  - DYSARTHRIA [None]
  - TREMOR [None]
